FAERS Safety Report 8582814-X (Version None)
Quarter: 2012Q3

REPORT INFORMATION
  Report Type: 
  Country: None (occurrence: None)
  Receive Date: 20120809
  Receipt Date: 20120803
  Transmission Date: 20120928
  Serious: Yes (Other)
  Sender: FDA-Public Use
  Company Number: CA-ROCHE-1098539

PATIENT
  Sex: Female
  Weight: 56.296 kg

DRUGS (5)
  1. ATORVASTATIN CALCIUM [Concomitant]
  2. IMURAN [Concomitant]
  3. PANTOPRAZOLE [Concomitant]
  4. ACTEMRA [Suspect]
     Indication: RHEUMATOID ARTHRITIS
     Route: 042
     Dates: start: 20120316
  5. PIROXICAM [Concomitant]

REACTIONS (1)
  - HAND FRACTURE [None]
